FAERS Safety Report 12644599 (Version 3)
Quarter: 2016Q3

REPORT INFORMATION
  Report Type: Spontaneous
  Country: NL (occurrence: NL)
  Receive Date: 20160811
  Receipt Date: 20160907
  Transmission Date: 20161109
  Serious: Yes (Hospitalization)
  Sender: FDA-Public Use
  Company Number: NL-BAYER-2016-151386

PATIENT
  Age: 66 Year
  Sex: Male

DRUGS (3)
  1. XOFIGO [Suspect]
     Active Substance: RADIUM RA-223 DICHLORIDE
     Dosage: UNK
     Dates: start: 2016
  2. XOFIGO [Suspect]
     Active Substance: RADIUM RA-223 DICHLORIDE
     Dosage: UNK
     Dates: start: 20160711
  3. XOFIGO [Suspect]
     Active Substance: RADIUM RA-223 DICHLORIDE
     Dosage: UNK
     Dates: start: 20160808, end: 20160808

REACTIONS (7)
  - Pyrexia [None]
  - Prostatic specific antigen increased [None]
  - Blood lactate dehydrogenase increased [None]
  - Haemoglobin decreased [None]
  - Pyrexia [None]
  - Pyrexia [None]
  - Blood alkaline phosphatase increased [None]

NARRATIVE: CASE EVENT DATE: 2016
